FAERS Safety Report 19004591 (Version 1)
Quarter: 2021Q1

REPORT INFORMATION
  Report Type: Spontaneous
  Country: US (occurrence: US)
  Receive Date: 20210313
  Receipt Date: 20210313
  Transmission Date: 20210420
  Serious: Yes (Other)
  Sender: FDA-Public Use
  Company Number: US-LUPIN PHARMACEUTICALS INC.-2021-03158

PATIENT
  Age: 40 Year
  Sex: Female

DRUGS (8)
  1. LURASIDONE [Suspect]
     Active Substance: LURASIDONE
     Dosage: 100 MILLIGRAM
     Route: 065
  2. LURASIDONE [Suspect]
     Active Substance: LURASIDONE
     Dosage: 120 MILLIGRAM
     Route: 065
  3. PROPRANOLOL [Concomitant]
     Active Substance: PROPRANOLOL HYDROCHLORIDE
     Indication: ANXIETY
     Dosage: 10 MILLIGRAM
     Route: 065
  4. LURASIDONE [Suspect]
     Active Substance: LURASIDONE
     Indication: BIPOLAR DISORDER
     Dosage: 80 MILLIGRAM
     Route: 065
  5. LORAZEPAM. [Concomitant]
     Active Substance: LORAZEPAM
     Indication: ANXIETY
     Dosage: UNK (14 PILLS EVERY 2 MONTHS)
     Route: 065
  6. MELATONIN [Concomitant]
     Active Substance: MELATONIN
     Indication: INSOMNIA
     Dosage: 10 MILLIGRAM (NIGHTLY; AS NEEDED)
     Route: 065
  7. METHYLPHENIDATE. [Concomitant]
     Active Substance: METHYLPHENIDATE
     Indication: ATTENTION DEFICIT HYPERACTIVITY DISORDER
     Dosage: 20 MILLIGRAM
     Route: 065
  8. BUSPIRONE [Concomitant]
     Active Substance: BUSPIRONE HYDROCHLORIDE
     Indication: ANXIETY
     Dosage: 15 MILLIGRAM, TID
     Route: 065

REACTIONS (3)
  - Laryngospasm [Recovered/Resolved]
  - Extrapyramidal disorder [Recovered/Resolved]
  - Oculogyric crisis [Recovered/Resolved]
